FAERS Safety Report 10039033 (Version 1)
Quarter: 2014Q1

REPORT INFORMATION
  Report Type: Spontaneous
  Country: US (occurrence: None)
  Receive Date: 20140306
  Receipt Date: 20140306
  Transmission Date: 20141002
  Serious: Yes (Other)
  Sender: FDA-Public Use
  Company Number: 163-21880-13052852

PATIENT
  Age: 66 Year
  Sex: Male
  Weight: 70.31 kg

DRUGS (4)
  1. REVLIMID (LENALIDOMIDE) (25 MILLIGRAM, CAPSULES) [Suspect]
     Indication: PLASMA CELL MYELOMA
     Dosage: 25MG, 21 IN 21 D, PO
     Route: 048
     Dates: start: 20111215
  2. ASPIRIN (ACETYLSALICYCLI ACID) [Concomitant]
  3. LISINOPRIL-HCTZ (ZESTORETIC) [Concomitant]
  4. ACYCLOVIR (ACICLOVIR) [Concomitant]

REACTIONS (1)
  - Thrombosis [None]
